FAERS Safety Report 16659273 (Version 1)
Quarter: 2019Q3

REPORT INFORMATION
  Report Type: Spontaneous
  Country: US (occurrence: US)
  Receive Date: 20190802
  Receipt Date: 20190802
  Transmission Date: 20191004
  Serious: Yes (Other)
  Sender: FDA-Public Use
  Company Number: US-BEH-2019104880

PATIENT
  Age: 25 Year
  Sex: Male

DRUGS (1)
  1. PRIVIGEN [Suspect]
     Active Substance: HUMAN IMMUNOGLOBULIN G
     Indication: MYASTHENIA GRAVIS
     Dosage: 80 GRAM, QOD
     Route: 042
     Dates: start: 2009

REACTIONS (4)
  - Vision blurred [Unknown]
  - Syncope [Unknown]
  - Nausea [Unknown]
  - Extravasation [Unknown]

NARRATIVE: CASE EVENT DATE: 20190719
